FAERS Safety Report 14069065 (Version 1)
Quarter: 2017Q4

REPORT INFORMATION
  Report Type: Spontaneous
  Country: US (occurrence: US)
  Receive Date: 20171010
  Receipt Date: 20171010
  Transmission Date: 20180321
  Serious: Yes (Disabling)
  Sender: FDA-Public Use
  Company Number: US-PFIZER INC-2017435797

PATIENT
  Age: 55 Year
  Sex: Female
  Weight: 85 kg

DRUGS (2)
  1. ACUPRIL [Concomitant]
     Active Substance: QUINAPRIL HYDROCHLORIDE
     Indication: BLOOD PRESSURE ABNORMAL
     Dosage: 40 MG, 1X/DAY
     Route: 048
  2. LYRICA [Suspect]
     Active Substance: PREGABALIN
     Indication: INTERVERTEBRAL DISC PROTRUSION
     Dosage: 150 MG, 2X/DAY
     Route: 048

REACTIONS (3)
  - Blindness unilateral [Unknown]
  - Retinal detachment [Unknown]
  - Retinopathy proliferative [Unknown]

NARRATIVE: CASE EVENT DATE: 2012
